FAERS Safety Report 9626201 (Version 2)
Quarter: 2013Q4

REPORT INFORMATION
  Report Type: Spontaneous
  Country: AR (occurrence: AR)
  Receive Date: 20131016
  Receipt Date: 20131104
  Transmission Date: 20140711
  Serious: Yes (Hospitalization)
  Sender: FDA-Public Use
  Company Number: AR-PFIZER INC-2013293464

PATIENT
  Age: 76 Year
  Sex: Female

DRUGS (1)
  1. GENOTROPIN [Suspect]
     Indication: GROWTH HORMONE DEFICIENCY
     Dosage: 5.3 MG, 1X/DAY
     Route: 058
     Dates: start: 19960201

REACTIONS (3)
  - Cholelithiasis [Recovering/Resolving]
  - Weight decreased [Unknown]
  - Asthenia [Unknown]
